FAERS Safety Report 14571709 (Version 1)
Quarter: 2018Q1

REPORT INFORMATION
  Report Type: Spontaneous
  Country: US (occurrence: US)
  Receive Date: 20180226
  Receipt Date: 20180226
  Transmission Date: 20180509
  Serious: No
  Sender: FDA-Public Use
  Company Number: US-PFIZER INC-2018074357

PATIENT
  Sex: Female

DRUGS (1)
  1. METHYLPHENIDATE HYDROCHLORIDE. [Suspect]
     Active Substance: METHYLPHENIDATE HYDROCHLORIDE
     Dosage: 5 MG, 4X/DAY (TAKES IT 4 TIMES A DAY, AT 7 AM, 10 AM, 1 PM AND 4 PM)

REACTIONS (3)
  - Inappropriate schedule of drug administration [Unknown]
  - Irritability [Unknown]
  - Drug ineffective [Unknown]
